FAERS Safety Report 25901150 (Version 2)
Quarter: 2025Q4

REPORT INFORMATION
  Report Type: Spontaneous
  Country: AU (occurrence: AU)
  Receive Date: 20251009
  Receipt Date: 20251017
  Transmission Date: 20260119
  Serious: Yes (Other)
  Sender: INSUD PHARMA
  Company Number: AU-EXELTIS PHARMACEUTICAL HOLDING, S.L.-2510AU08134

PATIENT
  Age: 40 Year
  Sex: Female

DRUGS (1)
  1. DROSPIRENONE [Suspect]
     Active Substance: DROSPIRENONE
     Indication: Product used for unknown indication

REACTIONS (5)
  - Suicidal ideation [Unknown]
  - Apathy [Unknown]
  - Depression [Recovered/Resolved]
  - Depressed mood [Recovered/Resolved]
  - Fatigue [Recovered/Resolved]

NARRATIVE: CASE EVENT DATE: 20250501
